FAERS Safety Report 15424104 (Version 1)
Quarter: 2018Q3

REPORT INFORMATION
  Report Type: Report from Study
  Country: CO (occurrence: CO)
  Receive Date: 20180925
  Receipt Date: 20180925
  Transmission Date: 20181010
  Serious: Yes (Other)
  Sender: FDA-Public Use
  Company Number: PHHY2018CO100305

PATIENT
  Sex: Female

DRUGS (1)
  1. TYKERB [Suspect]
     Active Substance: LAPATINIB DITOSYLATE
     Indication: BREAST CANCER METASTATIC
     Dosage: 1250 MG, QD
     Route: 048
     Dates: start: 20180901, end: 20180907

REACTIONS (6)
  - Noninfective encephalitis [Unknown]
  - Hallucination [Unknown]
  - Delusional perception [Unknown]
  - Disorientation [Unknown]
  - Brain oedema [Unknown]
  - Photosensitivity reaction [Unknown]
